FAERS Safety Report 5675429-4 (Version None)
Quarter: 2008Q2

REPORT INFORMATION
  Report Type: 
  Country: None (occurrence: None)
  Receive Date: 20080307
  Receipt Date: 20070122
  Transmission Date: 20081010
  Serious: Yes (Other)
  Sender: FDA-Public Use
  Company Number: US200701004382

PATIENT
  Age: 83 Year
  Sex: Male

DRUGS (2)
  1. GEMZAR [Suspect]
     Indication: BLADDER CANCER
     Dosage: 1000 MG
     Dates: start: 20061201
  2. CARBOPLATIN [Concomitant]

REACTIONS (1)
  - THROMBOCYTOPENIA [None]
